FAERS Safety Report 6733593-X (Version None)
Quarter: 2010Q2

REPORT INFORMATION
  Report Type: 
  Country: None (occurrence: None)
  Receive Date: 20100520
  Receipt Date: 20100517
  Transmission Date: 20101027
  Serious: Yes (Other)
  Sender: FDA-Public Use
  Company Number: US-RB-001556-10

PATIENT
  Age: 32 Year
  Sex: Female

DRUGS (3)
  1. SUBOXONE [Suspect]
     Route: 060
     Dates: start: 20070101
  2. KLONOPIN [Concomitant]
     Route: 065
  3. HEROIN [Suspect]
     Indication: DRUG USE FOR UNKNOWN INDICATION
     Dosage: UNKNOWN DOSING DETAILS
     Route: 065

REACTIONS (7)
  - AGITATION [None]
  - BRONCHITIS [None]
  - DEPRESSION [None]
  - DRUG EXPOSURE DURING PREGNANCY [None]
  - INFLUENZA [None]
  - PLEURISY [None]
  - SUICIDAL IDEATION [None]
